FAERS Safety Report 5186728-7 (Version None)
Quarter: 2006Q4

REPORT INFORMATION
  Report Type: 
  Country: None (occurrence: None)
  Receive Date: 20061213
  Receipt Date: 20061205
  Transmission Date: 20070319
  Serious: No
  Sender: FDA-Public Use
  Company Number: 31121

PATIENT
  Age: 32 Year
  Sex: Female
  Weight: 55 kg

DRUGS (1)
  1. MIGRAINE CPLT/PERRIGO COMPANY [Suspect]
     Dosage: APAP/ASA/CAFFEINE/10 TABLETS/ORAL
     Route: 048
     Dates: start: 20061205, end: 20061205

REACTIONS (3)
  - DIABETES MELLITUS [None]
  - INTENTIONAL OVERDOSE [None]
  - VOMITING [None]
